FAERS Safety Report 8406470-6 (Version None)
Quarter: 2012Q2

REPORT INFORMATION
  Report Type: 
  Country: None (occurrence: None)
  Receive Date: 20120604
  Receipt Date: 20120529
  Transmission Date: 20120825
  Serious: Yes (Hospitalization)
  Sender: FDA-Public Use
  Company Number: US-BAYER-2011-086805

PATIENT
  Age: 24 Year
  Sex: Female
  Weight: 90.703 kg

DRUGS (4)
  1. YASMIN [Suspect]
     Indication: MENSTRUATION IRREGULAR
     Dosage: UNK
     Dates: start: 20051201, end: 20070701
  2. VICODIN [Concomitant]
     Indication: TOOTH EXTRACTION
     Dosage: UNK
     Dates: start: 20070501
  3. YAZ [Suspect]
     Indication: MENSTRUATION IRREGULAR
     Dosage: UNK
     Dates: start: 20051201, end: 20070701
  4. PENICILLIN [Concomitant]
     Indication: TOOTH EXTRACTION
     Dosage: UNK
     Dates: start: 20070501

REACTIONS (8)
  - PULMONARY HYPERTENSION [None]
  - FEAR OF DISEASE [None]
  - PULMONARY EMBOLISM [None]
  - PAIN [None]
  - INJURY [None]
  - ANXIETY [None]
  - EMOTIONAL DISTRESS [None]
  - PSYCHOLOGICAL TRAUMA [None]
